FAERS Safety Report 25766940 (Version 2)
Quarter: 2025Q4

REPORT INFORMATION
  Report Type: Spontaneous
  Country: CA (occurrence: CA)
  Receive Date: 20250905
  Receipt Date: 20251113
  Transmission Date: 20260117
  Serious: Yes (Other)
  Sender: PFIZER
  Company Number: CA-PFIZER INC-202500172813

PATIENT
  Age: 15 Year
  Sex: Female

DRUGS (8)
  1. SOMATROPIN [Suspect]
     Active Substance: SOMATROPIN
     Indication: Growth hormone deficiency
     Dosage: 1.3 MG, DAILY,(1 DF, 1.3MG/DAY 7 DAYS/WEEK)
     Route: 058
     Dates: start: 20230103
  2. ATIVAN [Concomitant]
     Active Substance: LORAZEPAM
     Dosage: 1 DF, AS NEEDE, (0.5MG TO 1MG PRN)
  3. ATIVAN [Concomitant]
     Active Substance: LORAZEPAM
     Dosage: 1 DF, AS NEEDE, (0.5MG TO 1MG PRN)
  4. HUMATROPE [Concomitant]
     Active Substance: SOMATROPIN
     Dosage: 1.3 MG, WEEKLY, (1 DF, 1.3MG 7 DAYS/WK)
  5. LEVOTHYROXINE [Concomitant]
     Active Substance: LEVOTHYROXINE
     Dosage: 44 MG, 1X/DAY, (1 DF, 44 MG QD)
  6. LANSOPRAZOLE [Concomitant]
     Active Substance: LANSOPRAZOLE
     Dosage: 30 MG, 1X/DAY (1 DF, 30 MG QD)
  7. RISPERIDONE [Concomitant]
     Active Substance: RISPERIDONE
     Dosage: 0.75 MG, 2X/DAY, (1 DF,  0.75MG BID)
  8. CHOLECALCIFEROL [Concomitant]
     Active Substance: CHOLECALCIFEROL
     Dosage: 1 DF

REACTIONS (2)
  - Seizure [Unknown]
  - Viral infection [Unknown]

NARRATIVE: CASE EVENT DATE: 20230101
